FAERS Safety Report 16490542 (Version 1)
Quarter: 2019Q2

REPORT INFORMATION
  Report Type: Spontaneous
  Country: US (occurrence: US)
  Receive Date: 20190628
  Receipt Date: 20190628
  Transmission Date: 20190711
  Serious: Yes (Other)
  Sender: FDA-Public Use
  Company Number: US-009507513-1906USA008266

PATIENT
  Age: 23 Year
  Sex: Female
  Weight: 107.03 kg

DRUGS (2)
  1. NEXPLANON [Suspect]
     Active Substance: ETONOGESTREL
     Dosage: 1 IMPLANT, UNK; IN THE LEFT ARM
     Route: 059
     Dates: start: 20190219, end: 20190618
  2. NEXPLANON [Suspect]
     Active Substance: ETONOGESTREL
     Dosage: 1 IMPLANT, UNK; IN THE RIGHT ARM
     Route: 059
     Dates: start: 20190618

REACTIONS (4)
  - Device dislocation [Recovered/Resolved]
  - Implant site pain [Recovered/Resolved]
  - Implant site warmth [Recovered/Resolved]
  - Implant site reaction [Unknown]

NARRATIVE: CASE EVENT DATE: 20190616
